FAERS Safety Report 5670104-4 (Version None)
Quarter: 2008Q1

REPORT INFORMATION
  Report Type: 
  Country: None (occurrence: None)
  Receive Date: 20080312
  Receipt Date: 20080227
  Transmission Date: 20080703
  Serious: Yes (Hospitalization)
  Sender: FDA-Public Use
  Company Number: GXKR2008IT01817

PATIENT
  Age: 64 Year
  Sex: Male

DRUGS (4)
  1. ERYTHROMYCIN [Suspect]
     Dosage: 1 G, BID
  2. METHYLPREDNISOLONE [Suspect]
     Dosage: 16 MG, BID
  3. IRBESARTAN [Concomitant]
  4. ATENOLOL [Concomitant]

REACTIONS (6)
  - ACTIVITIES OF DAILY LIVING IMPAIRED [None]
  - BALANCE DISORDER [None]
  - GAIT DISTURBANCE [None]
  - HALLUCINATIONS, MIXED [None]
  - LIVER PALPABLE SUBCOSTAL [None]
  - TREMOR [None]
